FAERS Safety Report 10600321 (Version 2)
Quarter: 2015Q1

REPORT INFORMATION
  Report Type: Report from Study
  Country: US (occurrence: US)
  Receive Date: 20141123
  Receipt Date: 20150109
  Transmission Date: 20150720
  Serious: Yes (Death)
  Sender: FDA-Public Use
  Company Number: PHEH2014US023292

PATIENT
  Age: 39 Year
  Sex: Female
  Weight: 71.4 kg

DRUGS (2)
  1. AFINITOR [Suspect]
     Active Substance: EVEROLIMUS
     Indication: NEOPLASM MALIGNANT
     Dosage: 10 MG, QD
     Route: 048
     Dates: start: 20140827, end: 201409
  2. SANDOSTATIN LAR DEPOT [Suspect]
     Active Substance: OCTREOTIDE ACETATE
     Indication: NEOPLASM MALIGNANT
     Dosage: 30 MG, UNK
     Route: 058
     Dates: start: 20130224, end: 201409

REACTIONS (4)
  - Respiratory failure [Fatal]
  - Unresponsive to stimuli [Fatal]
  - Septic shock [Fatal]
  - Tachycardia [Fatal]

NARRATIVE: CASE EVENT DATE: 20140911
